FAERS Safety Report 19879807 (Version 1)
Quarter: 2021Q3

REPORT INFORMATION
  Report Type: Spontaneous
  Country: NL (occurrence: NL)
  Receive Date: 20210924
  Receipt Date: 20210924
  Transmission Date: 20211014
  Serious: Yes (Other)
  Sender: FDA-Public Use
  Company Number: NL-ACCORD-239566

PATIENT
  Sex: Female
  Weight: 76.8 kg

DRUGS (7)
  1. FULVESTRANT. [Suspect]
     Active Substance: FULVESTRANT
     Indication: BREAST CANCER
     Dosage: STRENGTH: 50 MG/ML, 2 INJECTIONS EVERY 4 WEEKS, START OF TREATMENT ON DAYS 1, 15 AND 29
     Dates: start: 20210707
  2. CALCIUM CARBONATE/COLECALCIFEROL/SODIUM [Concomitant]
     Active Substance: CALCIUM CARBONATE\CHOLECALCIFEROL
     Dosage: STRENGTH: 2.5 G / 800 IU (1000 MG CA)
  3. IBRANCE [Suspect]
     Active Substance: PALBOCICLIB
     Indication: BREAST CANCER
     Dosage: STRENGTH: 125 MG, 1D 1T FOR 3 WEEKS AND 1 WEEK STOP
     Dates: start: 20210708
  4. LEVETIRACETAM. [Concomitant]
     Active Substance: LEVETIRACETAM
     Dosage: STRENGTH: 500 MG
  5. RISEDRONATE SODIUM/RISEDRONIC ACID [Concomitant]
     Active Substance: RISEDRONATE SODIUM
     Dosage: STRENGTH: 35 MG
  6. CANNABIS SATIVA [Concomitant]
     Active Substance: CANNABIS SATIVA FLOWERING TOP
     Dosage: CBD/THC OIL
  7. CARBASALATE [Concomitant]
     Active Substance: CARBASPIRIN
     Dosage: STRENGTH: 100 MG, SACHET (POWDER).

REACTIONS (1)
  - Depressed level of consciousness [Recovering/Resolving]
